FAERS Safety Report 6400476-4 (Version None)
Quarter: 2009Q4

REPORT INFORMATION
  Report Type: 
  Country: None (occurrence: None)
  Receive Date: 20091014
  Receipt Date: 20091012
  Transmission Date: 20100525
  Serious: Yes (Other)
  Sender: FDA-Public Use
  Company Number: -BAXTER-2009BH014831

PATIENT
  Age: 29 Year
  Sex: Female

DRUGS (1)
  1. PHENERGAN HCL [Suspect]
     Indication: NAUSEA
     Route: 030
     Dates: start: 20070701, end: 20070701

REACTIONS (3)
  - BURNING SENSATION [None]
  - DRUG ADMINISTRATION ERROR [None]
  - PAIN [None]
